FAERS Safety Report 5471855-7 (Version None)
Quarter: 2007Q3

REPORT INFORMATION
  Report Type: 
  Country: None (occurrence: None)
  Receive Date: 20070928
  Receipt Date: 20070702
  Transmission Date: 20080115
  Serious: No
  Sender: FDA-Public Use
  Company Number: US-BRISTOL-MYERS SQUIBB COMPANY-13831623

PATIENT
  Age: 78 Year
  Sex: Female
  Weight: 95 kg

DRUGS (5)
  1. DEFINITY [Suspect]
     Indication: CARDIAC STRESS TEST
     Dates: start: 20070630, end: 20070630
  2. LIPITOR [Concomitant]
  3. NORVASC [Concomitant]
  4. PLAVIX [Concomitant]
  5. BETAPACE [Concomitant]

REACTIONS (1)
  - BACK PAIN [None]
